FAERS Safety Report 4321837-3 (Version None)
Quarter: 2004Q1

REPORT INFORMATION
  Report Type: 
  Country: None (occurrence: None)
  Receive Date: 20040322
  Receipt Date: 20031210
  Transmission Date: 20041129
  Serious: Yes (Other)
  Sender: FDA-Public Use
  Company Number: PERC20030101

PATIENT
  Sex: Male

DRUGS (1)
  1. PERCOCET [Suspect]
     Indication: PAIN
     Dosage: PO
     Route: 048
     Dates: start: 19960101, end: 20030101

REACTIONS (1)
  - DRUG DEPENDENCE [None]
